FAERS Safety Report 7952614-X (Version None)
Quarter: 2011Q4

REPORT INFORMATION
  Report Type: 
  Country: None (occurrence: None)
  Receive Date: 20111201
  Receipt Date: 20111121
  Transmission Date: 20120403
  Serious: Yes (Hospitalization)
  Sender: FDA-Public Use
  Company Number: GR-JNJFOC-20111108599

PATIENT
  Age: 63 Year
  Sex: Male

DRUGS (4)
  1. ANTIHYPERTENSIVE [Concomitant]
     Indication: CONGESTIVE CARDIOMYOPATHY
  2. CORTISONE ACETATE [Concomitant]
  3. SIMPONI [Suspect]
     Indication: RHEUMATOID ARTHRITIS
     Route: 058
  4. METHOTREXATE [Concomitant]
     Indication: RHEUMATOID ARTHRITIS

REACTIONS (5)
  - LUNG INFECTION [None]
  - CARDIAC DISORDER [None]
  - INFLAMMATION [None]
  - ARRHYTHMIA [None]
  - ORTHOPNOEA [None]
